FAERS Safety Report 9214154 (Version 1)
Quarter: 2013Q2

REPORT INFORMATION
  Report Type: Spontaneous
  Country: GB (occurrence: GB)
  Receive Date: 20130405
  Receipt Date: 20130405
  Transmission Date: 20140414
  Serious: Yes (Hospitalization)
  Sender: FDA-Public Use
  Company Number: GB-009507513-1304GBR001448

PATIENT
  Age: 70 Year
  Sex: Female

DRUGS (3)
  1. FOSAMAX [Suspect]
     Indication: PROPHYLAXIS
     Dosage: FIVE YEARS
     Route: 048
  2. PREDNISOLONE [Concomitant]
     Indication: PROPHYLAXIS
     Dosage: LOW DOSE
  3. ADCAL-D3 [Concomitant]
     Indication: PROPHYLAXIS

REACTIONS (2)
  - Pubis fracture [Unknown]
  - Pathological fracture [Unknown]
